FAERS Safety Report 8013582-8 (Version None)
Quarter: 2011Q4

REPORT INFORMATION
  Report Type: 
  Country: None (occurrence: None)
  Receive Date: 20111229
  Receipt Date: 20111216
  Transmission Date: 20120403
  Serious: Yes (Death)
  Sender: FDA-Public Use
  Company Number: ES-TEVA-314812ISR

PATIENT
  Age: 87 Year
  Sex: Male

DRUGS (4)
  1. DOXORUBICIN HCL [Suspect]
     Indication: NON-HODGKIN'S LYMPHOMA
     Dosage: 81 MILLIGRAM;
     Route: 042
     Dates: start: 20110330, end: 20110823
  2. VINCRISTINE [Suspect]
     Indication: NON-HODGKIN'S LYMPHOMA
     Dosage: 2 MILLIGRAM;
     Route: 042
     Dates: start: 20110330, end: 20110823
  3. MABTHERA 500 MG 1 VIAL 50 ML [Suspect]
     Indication: NON-HODGKIN'S LYMPHOMA
     Dosage: 607 MILLIGRAM;
     Route: 042
     Dates: start: 20110330, end: 20110823
  4. CYCLOPHOSPHAMIDE [Suspect]
     Indication: NON-HODGKIN'S LYMPHOMA
     Dosage: 1215 MILLIGRAM;
     Route: 042
     Dates: start: 20110330, end: 20110823

REACTIONS (2)
  - PYREXIA [None]
  - PANCYTOPENIA [None]
